FAERS Safety Report 6256622-9 (Version None)
Quarter: 2009Q3

REPORT INFORMATION
  Report Type: 
  Country: None (occurrence: None)
  Receive Date: 20090706
  Receipt Date: 20090701
  Transmission Date: 20100115
  Serious: Yes (Hospitalization)
  Sender: FDA-Public Use
  Company Number: JP-BAYER-200811036BYL

PATIENT
  Age: 28 Year
  Sex: Male
  Weight: 50 kg

DRUGS (2)
  1. BETAFERON [Suspect]
     Indication: MULTIPLE SCLEROSIS
     Route: 058
     Dates: start: 20080303, end: 20080523
  2. PONTAL [Concomitant]
     Route: 048

REACTIONS (1)
  - DIARRHOEA [None]
